FAERS Safety Report 6288285-0 (Version None)
Quarter: 2009Q3

REPORT INFORMATION
  Report Type: 
  Country: None (occurrence: None)
  Receive Date: 20090729
  Receipt Date: 20090717
  Transmission Date: 20100115
  Serious: Yes (Other)
  Sender: FDA-Public Use
  Company Number: DK-PFIZER INC-2009243111

PATIENT

DRUGS (3)
  1. VORICONAZOLE [Suspect]
     Indication: HEPATOSPLENIC CANDIDIASIS
     Dosage: UNK
  2. METHOTREXATE [Suspect]
     Indication: ACUTE LYMPHOCYTIC LEUKAEMIA
     Dosage: UNK
     Dates: start: 20070101, end: 20090101
  3. MERCAPTOPURINE [Suspect]
     Indication: ACUTE LYMPHOCYTIC LEUKAEMIA
     Dosage: UNK
     Dates: start: 20070101, end: 20090101

REACTIONS (1)
  - HEPATIC CIRRHOSIS [None]
